FAERS Safety Report 10205130 (Version 1)
Quarter: 2014Q2

REPORT INFORMATION
  Report Type: Report from Study
  Country: US (occurrence: US)
  Receive Date: 20140529
  Receipt Date: 20140529
  Transmission Date: 20141212
  Serious: Yes (Other)
  Sender: FDA-Public Use
  Company Number: PHEH2014US010805

PATIENT
  Age: 45 Year
  Sex: Female

DRUGS (1)
  1. GILENYA [Suspect]
     Dosage: 1 DF, QD
     Route: 048

REACTIONS (3)
  - Fall [Unknown]
  - Peroneal nerve palsy [Unknown]
  - Gait disturbance [Unknown]
